FAERS Safety Report 19760398 (Version 1)
Quarter: 2021Q3

REPORT INFORMATION
  Report Type: Report from Study
  Country: None (occurrence: CA)
  Receive Date: 20210830
  Receipt Date: 20210830
  Transmission Date: 20211014
  Serious: Yes (Other)
  Sender: FDA-Public Use
  Company Number: CA-ABBVIE-21K-028-4056541-00

PATIENT
  Sex: Male

DRUGS (1)
  1. HUMIRA [Suspect]
     Active Substance: ADALIMUMAB
     Indication: CROHN^S DISEASE
     Route: 058
     Dates: start: 2017

REACTIONS (5)
  - Abscess [Unknown]
  - Muscle spasms [Not Recovered/Not Resolved]
  - Fistula [Not Recovered/Not Resolved]
  - Skin ulcer [Recovered/Resolved]
  - Anal fistula [Unknown]

NARRATIVE: CASE EVENT DATE: 2020
